FAERS Safety Report 11199249 (Version 1)
Quarter: 2015Q2

REPORT INFORMATION
  Report Type: Spontaneous
  Country: US (occurrence: US)
  Receive Date: 20150618
  Receipt Date: 20150618
  Transmission Date: 20150821
  Serious: No
  Sender: FDA-Public Use
  Company Number: US-PFIZER INC-2015198608

PATIENT
  Age: 86 Year
  Sex: Male

DRUGS (2)
  1. LIPITOR [Suspect]
     Active Substance: ATORVASTATIN CALCIUM
     Dosage: 80 MG, UNK (TAKING IT APPROXIMATELY FROM 10 TO 14 DAYS)
     Dates: start: 2015
  2. LIPITOR [Suspect]
     Active Substance: ATORVASTATIN CALCIUM
     Dosage: 20 MG, DAILY

REACTIONS (6)
  - Dysstasia [Unknown]
  - Dizziness [Unknown]
  - Diplopia [Unknown]
  - Asthenia [Unknown]
  - Extra dose administered [Unknown]
  - Muscle disorder [Unknown]
